FAERS Safety Report 4414976-X (Version None)
Quarter: 2004Q3

REPORT INFORMATION
  Report Type: 
  Country: None (occurrence: None)
  Receive Date: 20040803
  Receipt Date: 20040803
  Transmission Date: 20050211
  Serious: Yes (Life-Threatening, Hospitalization, Other)
  Sender: FDA-Public Use
  Company Number: None

PATIENT
  Age: 66 Year
  Sex: Female

DRUGS (6)
  1. CAPECITABINE  3300MG/ DAY [Suspect]
     Indication: COLON CANCER
     Dosage: 3300MG  DAILY  ORAL
     Route: 048
     Dates: start: 20040429, end: 20040602
  2. WARFARIN SODIUM [Suspect]
     Indication: PROPHYLAXIS
     Dosage: 1MG  DAILY  ORAL
     Route: 048
     Dates: start: 20031001, end: 20040603
  3. KCL TAB [Concomitant]
  4. VASOCON [Concomitant]
  5. TEARS [Concomitant]
  6. VITAMIN B6 [Concomitant]

REACTIONS (1)
  - RETROPERITONEAL HAEMORRHAGE [None]
